FAERS Safety Report 15222912 (Version 1)
Quarter: 2018Q3

REPORT INFORMATION
  Report Type: Spontaneous
  Country: US (occurrence: US)
  Receive Date: 20180705
  Receipt Date: 20180705
  Transmission Date: 20181010
  Serious: Yes (Other)
  Sender: FDA-Public Use
  Company Number: None

PATIENT
  Age: 83 Year
  Sex: Female
  Weight: 72.12 kg

DRUGS (1)
  1. ALENDRONATE [Suspect]
     Active Substance: ALENDRONATE SODIUM
     Dosage: ?          OTHER FREQUENCY: 1 WEEK;?
     Dates: start: 20181130

REACTIONS (4)
  - Myalgia [None]
  - Pain in extremity [None]
  - Balance disorder [None]
  - Muscular weakness [None]
